FAERS Safety Report 10742295 (Version 1)
Quarter: 2015Q1

REPORT INFORMATION
  Report Type: Spontaneous
  Country: US (occurrence: None)
  Receive Date: 20150123
  Receipt Date: 20150123
  Transmission Date: 20150721
  Serious: Yes (Hospitalization)
  Sender: FDA-Public Use
  Company Number: None

PATIENT
  Age: 54 Year
  Sex: Female
  Weight: 70.31 kg

DRUGS (1)
  1. LOVENOX [Suspect]
     Active Substance: ENOXAPARIN SODIUM
     Indication: THROMBOSIS PROPHYLAXIS
     Dates: start: 20130302

REACTIONS (8)
  - Infusion site pain [None]
  - Burning sensation [None]
  - Pruritus [None]
  - Urticaria [None]
  - Anxiety [None]
  - Pain [None]
  - Hypersensitivity [None]
  - Refusal of treatment by patient [None]
